FAERS Safety Report 7297098-2 (Version None)
Quarter: 2011Q1

REPORT INFORMATION
  Report Type: 
  Country: None (occurrence: None)
  Receive Date: 20110216
  Receipt Date: 20110209
  Transmission Date: 20110831
  Serious: No
  Sender: FDA-Public Use
  Company Number: US-PFIZER INC-2011029927

PATIENT

DRUGS (2)
  1. ZYVOX [Suspect]
  2. METHADONE [Interacting]

REACTIONS (1)
  - DRUG INTERACTION [None]
